FAERS Safety Report 6757278-9 (Version None)
Quarter: 2010Q2

REPORT INFORMATION
  Report Type: 
  Country: None (occurrence: None)
  Receive Date: 20100607
  Receipt Date: 20100527
  Transmission Date: 20101027
  Serious: No
  Sender: FDA-Public Use
  Company Number: US-BIOGENIDEC-2010BI017747

PATIENT
  Sex: Female

DRUGS (3)
  1. TYSABRI [Suspect]
     Indication: MULTIPLE SCLEROSIS
     Route: 042
     Dates: start: 20061115, end: 20080919
  2. TYSABRI [Suspect]
     Route: 042
     Dates: start: 20081212
  3. STEROIDS [NOS] [Concomitant]
     Indication: MULTIPLE SCLEROSIS

REACTIONS (8)
  - ANGER [None]
  - ARTHRALGIA [None]
  - ASTHENIA [None]
  - BALANCE DISORDER [None]
  - EMOTIONAL DISTRESS [None]
  - HEADACHE [None]
  - MALAISE [None]
  - MYALGIA [None]
